FAERS Safety Report 4842217-8 (Version None)
Quarter: 2005Q4

REPORT INFORMATION
  Report Type: 
  Country: None (occurrence: None)
  Receive Date: 20051129
  Receipt Date: 20051114
  Transmission Date: 20060501
  Serious: Yes (Hospitalization)
  Sender: FDA-Public Use
  Company Number: 2005BI012024

PATIENT
  Age: 55 Year
  Sex: Female

DRUGS (5)
  1. AVONEX [Suspect]
     Indication: MULTIPLE SCLEROSIS
     Dosage: 30 UG; QW; IM
     Route: 030
     Dates: start: 20041001
  2. ALBUTEROL [Concomitant]
  3. ATROVENT [Concomitant]
  4. WELLBUTRIN [Concomitant]
  5. DETROL LA [Concomitant]

REACTIONS (2)
  - COAGULOPATHY [None]
  - COLITIS [None]
